FAERS Safety Report 5073119-2 (Version None)
Quarter: 2006Q2

REPORT INFORMATION
  Report Type: 
  Country: None (occurrence: None)
  Receive Date: 20060605
  Receipt Date: 20060522
  Transmission Date: 20061013
  Serious: No
  Sender: FDA-Public Use
  Company Number: 2006BH010337

PATIENT
  Age: 11 Year
  Sex: Male

DRUGS (1)
  1. HEMOFIL M [Suspect]
     Indication: FACTOR VIII DEFICIENCY
     Dosage: 1000 IU; 3X  A WEEK; UNK
     Dates: start: 19950101

REACTIONS (1)
  - HEPATITIS C VIRUS [None]
